FAERS Safety Report 6059379-X (Version None)
Quarter: 2009Q1

REPORT INFORMATION
  Report Type: 
  Country: None (occurrence: None)
  Receive Date: 20090128
  Receipt Date: 20090128
  Transmission Date: 20090719
  Serious: Yes (Hospitalization)
  Sender: FDA-Public Use
  Company Number: None

PATIENT
  Age: 62 Year
  Sex: Female
  Weight: 68 kg

DRUGS (2)
  1. DACARBAZINE [Suspect]
     Indication: MALIGNANT MELANOMA
     Dosage: 800MG/M2 EVERY 3 WEEKS
  2. DASATINIB [Suspect]
     Indication: MALIGNANT MELANOMA
     Dosage: 70 MG BID X 18 DAYS/CYC

REACTIONS (8)
  - ASTHENIA [None]
  - DEHYDRATION [None]
  - DIZZINESS [None]
  - HAEMOGLOBIN DECREASED [None]
  - HEPATIC ENZYME INCREASED [None]
  - LOSS OF CONSCIOUSNESS [None]
  - ORTHOSTATIC HYPOTENSION [None]
  - PRESYNCOPE [None]
